FAERS Safety Report 10756053 (Version 1)
Quarter: 2015Q1

REPORT INFORMATION
  Report Type: Spontaneous
  Country: US (occurrence: None)
  Receive Date: 20150123
  Receipt Date: 20150123
  Transmission Date: 20150721
  Serious: No
  Sender: FDA-Public Use
  Company Number: 2014TUS007320

PATIENT
  Age: 54 Year
  Sex: Male
  Weight: 189 kg

DRUGS (5)
  1. AMBIEN CR (ZOLPIDEM TARTRATE) [Concomitant]
  2. ENTYVIO [Suspect]
     Active Substance: VEDOLIZUMAB
     Indication: CROHN^S DISEASE
     Route: 042
     Dates: start: 2014, end: 2014
  3. AMITRIPTYLINE (AMITRIPTYLINE) [Concomitant]
     Active Substance: AMITRIPTYLINE
  4. B12 /00056201/ (CYANOCOBALAMIN) [Concomitant]
  5. CIALIS [Concomitant]
     Active Substance: TADALAFIL

REACTIONS (1)
  - Back pain [None]

NARRATIVE: CASE EVENT DATE: 20140710
